FAERS Safety Report 11473594 (Version 1)
Quarter: 2015Q3

REPORT INFORMATION
  Report Type: Spontaneous
  Country: US (occurrence: None)
  Receive Date: 20150902
  Receipt Date: 20150902
  Transmission Date: 20151125
  Serious: Yes (Hospitalization)
  Sender: FDA-Public Use
  Company Number: A-NJ2014-101865

PATIENT
  Age: 47 Year
  Sex: Female

DRUGS (2)
  1. VELETRI [Suspect]
     Active Substance: EPOPROSTENOL
     Indication: COR PULMONALE CHRONIC
     Dosage: 36 NG/KG, PER MIN
     Route: 042
     Dates: start: 20130420
  2. REVATIO (SILDENAFIL CITRATE) [Concomitant]

REACTIONS (4)
  - Device breakage [None]
  - Device leakage [None]
  - Dyspnoea [None]
  - Dizziness [None]
